FAERS Safety Report 7538088-1 (Version None)
Quarter: 2011Q2

REPORT INFORMATION
  Report Type: 
  Country: None (occurrence: None)
  Receive Date: 20110609
  Receipt Date: 20010216
  Transmission Date: 20111010
  Serious: Yes (Death, Hospitalization)
  Sender: FDA-Public Use
  Company Number: PHFR2001GB00739

PATIENT
  Sex: Male

DRUGS (8)
  1. LEVOTHYROXINE SODIUM [Concomitant]
     Indication: HYPOTHYROIDISM
     Dosage: 50 UG, DAILY
     Route: 048
  2. PROCYCLIDINE HYDROCHLORIDE 2MG TAB [Concomitant]
     Indication: SCHIZOPHRENIA
     Dosage: 5 MG, TID
     Route: 048
  3. BENDROFLUAZIDE [Concomitant]
     Indication: HYPOTENSION
     Dosage: 2.5 MG, DAILY
     Route: 048
  4. FLUOXETINE HCL [Concomitant]
     Dosage: 20 MG, DAILY
     Route: 048
  5. FERROUS SULFATE TAB [Concomitant]
     Dosage: 200 MG, BID
  6. ZOPICLONE [Concomitant]
     Indication: SLEEP APNOEA SYNDROME
     Dosage: 7.5 MG, NOCTE
     Route: 048
  7. CLOZARIL [Suspect]
     Indication: SCHIZOPHRENIA
     Dosage: 225 MG, DAILY
     Route: 048
     Dates: start: 19980416
  8. SENNA-MINT WAF [Concomitant]
     Dosage: 2 DF, DAILY

REACTIONS (2)
  - CARDIAC ARREST [None]
  - WEIGHT DECREASED [None]
